FAERS Safety Report 8765716 (Version 4)
Quarter: 2012Q4

REPORT INFORMATION
  Report Type: 
  Country: CA (occurrence: CA)
  Receive Date: 20120903
  Receipt Date: 20121105
  Transmission Date: 20130627
  Serious: Yes (Other)
  Sender: FDA-Public Use
  Company Number: PHHY2012CA052493

PATIENT
  Age: 37 Year
  Sex: Female

DRUGS (1)
  1. GILENYA [Suspect]
     Indication: RELAPSING-REMITTING MULTIPLE SCLEROSIS
     Dosage: 0.5 mg, daily
     Route: 048
     Dates: start: 20120615

REACTIONS (14)
  - Crohn^s disease [Not Recovered/Not Resolved]
  - Diarrhoea [Unknown]
  - Weight decreased [Not Recovered/Not Resolved]
  - Stress [Unknown]
  - Productive cough [Not Recovered/Not Resolved]
  - Fatigue [Unknown]
  - Blood pressure decreased [Unknown]
  - Migraine [Recovered/Resolved]
  - Headache [Recovered/Resolved]
  - Vomiting [Recovered/Resolved]
  - Alopecia [Not Recovered/Not Resolved]
  - Lymphocyte count decreased [Unknown]
  - Heart rate decreased [Unknown]
  - Nasopharyngitis [Unknown]
